FAERS Safety Report 7142791-5 (Version None)
Quarter: 2010Q4

REPORT INFORMATION
  Report Type: 
  Country: None (occurrence: None)
  Receive Date: 20101207
  Receipt Date: 20101124
  Transmission Date: 20110411
  Serious: Yes (Other)
  Sender: FDA-Public Use
  Company Number: US-AMGEN-QUU432026

PATIENT

DRUGS (3)
  1. NPLATE [Suspect]
     Indication: IDIOPATHIC THROMBOCYTOPENIC PURPURA
     Dosage: 180 A?G, QWK
     Route: 058
     Dates: start: 20091228, end: 20100223
  2. NPLATE [Suspect]
     Dates: start: 20100223, end: 20100503
  3. IMMUNOGLOBULINS [Concomitant]
     Dosage: UNK UNK, UNK
     Route: 042
     Dates: start: 20081104

REACTIONS (3)
  - CONTUSION [None]
  - DRUG INEFFECTIVE [None]
  - GINGIVAL BLEEDING [None]
